FAERS Safety Report 4893120-9 (Version None)
Quarter: 2005Q4

REPORT INFORMATION
  Report Type: 
  Country: None (occurrence: None)
  Receive Date: 20051223
  Receipt Date: 20041221
  Transmission Date: 20060501
  Serious: Yes (Hospitalization, Other)
  Sender: FDA-Public Use
  Company Number: PHEH2004US13593

PATIENT
  Sex: Female

DRUGS (2)
  1. CLOZARIL [Suspect]
     Dosage: 600 MG, QD, ORAL
     Route: 048
     Dates: start: 20041221, end: 20041221
  2. DEPAKOTE [Suspect]
     Indication: PROPHYLAXIS
     Dosage: 250 MG, BID, ORAL
     Route: 048
     Dates: start: 20041221

REACTIONS (2)
  - HYPOTENSION [None]
  - TREATMENT NONCOMPLIANCE [None]
